FAERS Safety Report 7960360-1 (Version None)
Quarter: 2011Q4

REPORT INFORMATION
  Report Type: 
  Country: None (occurrence: None)
  Receive Date: 20111206
  Receipt Date: 20111202
  Transmission Date: 20120403
  Serious: Yes (Death)
  Sender: FDA-Public Use
  Company Number: US-ABBOTT-11P-163-0880081-00

PATIENT
  Sex: Female

DRUGS (4)
  1. VICOPROFEN [Suspect]
     Indication: PRODUCT USED FOR UNKNOWN INDICATION
     Dosage: 7.5/200 EVERY FOUR HOURS AS NEEDED
     Route: 048
     Dates: start: 20110626
  2. ASPIRIN [Concomitant]
     Indication: PRODUCT USED FOR UNKNOWN INDICATION
  3. TORADOL [Suspect]
     Indication: PRODUCT USED FOR UNKNOWN INDICATION
  4. COUMADIN [Suspect]
     Indication: PRODUCT USED FOR UNKNOWN INDICATION

REACTIONS (3)
  - HAEMATEMESIS [None]
  - ABDOMINAL DISTENSION [None]
  - HAEMORRHAGE [None]
